FAERS Safety Report 8270809-5 (Version None)
Quarter: 2012Q2

REPORT INFORMATION
  Report Type: 
  Country: None (occurrence: None)
  Receive Date: 20120410
  Receipt Date: 20120327
  Transmission Date: 20120825
  Serious: Yes (Death, Other)
  Sender: FDA-Public Use
  Company Number: NL-CELGENEUS-114-21880-12012670

PATIENT

DRUGS (3)
  1. ARANESP [Concomitant]
     Route: 065
  2. REVLIMID [Suspect]
     Indication: CASTLEMAN'S DISEASE
     Dosage: 10 MILLIGRAM
     Route: 048
     Dates: start: 20071112, end: 20111216
  3. DEXAMETHASONE [Concomitant]
     Route: 065
     Dates: start: 20071112

REACTIONS (2)
  - PAIN [None]
  - DEATH [None]
